FAERS Safety Report 4283903-0 (Version None)
Quarter: 2004Q1

REPORT INFORMATION
  Report Type: 
  Country: None (occurrence: None)
  Receive Date: 20040115
  Receipt Date: 20030814
  Transmission Date: 20041129
  Serious: Yes (Hospitalization)
  Sender: FDA-Public Use
  Company Number: US-JNJFOC-20030603944

PATIENT
  Age: 81 Year
  Sex: Female
  Weight: 61.2356 kg

DRUGS (2)
  1. DOXIL [Suspect]
     Indication: OVARIAN CANCER
     Dosage: 37.5 MG/M2, 1 IN 3 WEEK, INTRAVENOUS
     Route: 042
  2. ANZEMET (COLSASETRON MESILATE) [Concomitant]

REACTIONS (1)
  - FEBRILE NEUTROPENIA [None]
